FAERS Safety Report 20688721 (Version 1)
Quarter: 2022Q2

REPORT INFORMATION
  Report Type: Spontaneous
  Country: DE (occurrence: DE)
  Receive Date: 20220408
  Receipt Date: 20220408
  Transmission Date: 20220721
  Serious: Yes (Other)
  Sender: FDA-Public Use
  Company Number: DE-VIVAPROD-2022MSNLIT00346

PATIENT

DRUGS (2)
  1. DEFERASIROX [Suspect]
     Active Substance: DEFERASIROX
     Indication: Iron overload
     Route: 065
  2. DEFERASIROX [Suspect]
     Active Substance: DEFERASIROX
     Route: 065

REACTIONS (2)
  - Cholestasis [Recovered/Resolved]
  - Coombs negative haemolytic anaemia [Recovered/Resolved]
